FAERS Safety Report 22271670 (Version 2)
Quarter: 2023Q2

REPORT INFORMATION
  Report Type: Spontaneous
  Country: US (occurrence: US)
  Receive Date: 20230502
  Receipt Date: 20230510
  Transmission Date: 20230722
  Serious: Yes (Other)
  Sender: FDA-Public Use
  Company Number: US-ENDO PHARMACEUTICALS INC-2023-001708

PATIENT
  Age: 52 Year
  Sex: Female
  Weight: 108.84 kg

DRUGS (10)
  1. FROVA [Suspect]
     Active Substance: FROVATRIPTAN SUCCINATE
     Indication: Headache
     Dosage: 2.5 MG, OD
     Route: 048
     Dates: start: 2005
  2. FROVA [Suspect]
     Active Substance: FROVATRIPTAN SUCCINATE
     Dosage: 2.5MG TABLET ONCE A DAY AND ANOTHER 2.5MG TABLET AS NEEDED
     Route: 048
  3. FROVA [Suspect]
     Active Substance: FROVATRIPTAN SUCCINATE
     Dosage: 2.5 MG, UNKNOWN
     Route: 048
  4. FROVATRIPTAN [Suspect]
     Active Substance: FROVATRIPTAN
     Indication: Headache
     Dosage: 2.5MG TABLET, ONCE A DAY AND ANOTHER 2.5MG TABLET AS NEEDED 2 HOURS AFTER INITIAL DOSE
     Route: 048
     Dates: start: 2014
  5. ATARAX                             /00058401/ [Concomitant]
     Indication: Vertigo
     Dosage: ONE TO TWO TABLETS, EVERY SIX HOURS, AS NEEDED
     Route: 065
  6. ATARAX                             /00058401/ [Concomitant]
     Indication: Nausea
  7. MIRAPEX [Concomitant]
     Active Substance: PRAMIPEXOLE DIHYDROCHLORIDE
     Indication: Pain
     Dosage: 1.5 MG, BID
     Route: 065
  8. UBRELVY [Concomitant]
     Active Substance: UBROGEPANT
     Indication: Migraine
     Dosage: 2 DF, DAILY AS NEEDED
     Route: 065
  9. ZOFRAN                             /00955301/ [Concomitant]
     Indication: Vomiting
     Dosage: 8 MG, TID AS NEEDED
     Route: 065
  10. ZOFRAN                             /00955301/ [Concomitant]
     Indication: Retching

REACTIONS (3)
  - Brain neoplasm [Not Recovered/Not Resolved]
  - Condition aggravated [Not Recovered/Not Resolved]
  - Unevaluable event [Unknown]

NARRATIVE: CASE EVENT DATE: 20230301
